FAERS Safety Report 12256901 (Version 1)
Quarter: 2016Q2

REPORT INFORMATION
  Report Type: Spontaneous
  Country: US (occurrence: US)
  Receive Date: 20160412
  Receipt Date: 20160412
  Transmission Date: 20160815
  Serious: Yes (Hospitalization, Other)
  Sender: FDA-Public Use
  Company Number: US-GLAXOSMITHKLINE-US2016047510

PATIENT
  Sex: Female

DRUGS (3)
  1. FLUTICASONE PROPIONATE NASAL SPRAY [Concomitant]
     Active Substance: FLUTICASONE PROPIONATE
  2. ADVAIR DISKUS [Suspect]
     Active Substance: FLUTICASONE PROPIONATE\SALMETEROL XINAFOATE
     Indication: ASTHMA
     Dosage: 1 PUFF(S), BID
     Route: 055
  3. COZAAR [Concomitant]
     Active Substance: LOSARTAN POTASSIUM

REACTIONS (13)
  - Hypertension [Not Recovered/Not Resolved]
  - Drug ineffective [Recovered/Resolved]
  - Neovascular age-related macular degeneration [Not Recovered/Not Resolved]
  - Head injury [Recovered/Resolved]
  - Cataract [Not Recovered/Not Resolved]
  - Drug dose omission [Unknown]
  - Blindness unilateral [Not Recovered/Not Resolved]
  - Cough [Recovered/Resolved]
  - Cerebral haemorrhage [Recovered/Resolved]
  - Retinal haemorrhage [Recovered/Resolved]
  - Fall [Recovered/Resolved]
  - Sleep disorder [Recovered/Resolved]
  - Device use error [Unknown]
